FAERS Safety Report 16264643 (Version 1)
Quarter: 2019Q2

REPORT INFORMATION
  Report Type: Spontaneous
  Country: US (occurrence: US)
  Receive Date: 20190502
  Receipt Date: 20190502
  Transmission Date: 20190711
  Serious: Yes (Other)
  Sender: FDA-Public Use
  Company Number: US-PFIZER INC-2019179931

PATIENT
  Sex: Female
  Weight: 113.4 kg

DRUGS (1)
  1. MORPHINE SULFATE. [Suspect]
     Active Substance: MORPHINE SULFATE
     Indication: FIBROMYALGIA
     Dosage: 50 MG, 2X/DAY

REACTIONS (2)
  - Incorrect product administration duration [Unknown]
  - Drug dependence [Unknown]
